FAERS Safety Report 10563316 (Version 1)
Quarter: 2014Q4

REPORT INFORMATION
  Report Type: Spontaneous
  Country: US (occurrence: None)
  Receive Date: 20141103
  Receipt Date: 20141103
  Transmission Date: 20150529
  Serious: No
  Sender: FDA-Public Use
  Company Number: None

PATIENT
  Age: 83 Year
  Sex: Male

DRUGS (9)
  1. WARFARIN [Suspect]
     Active Substance: WARFARIN
     Indication: ANTICOAGULANT THERAPY
     Route: 048
     Dates: start: 20140811, end: 20140824
  2. TAMSULOSIN [Concomitant]
     Active Substance: TAMSULOSIN
  3. DOCUSATE [Concomitant]
     Active Substance: DOCUSATE
  4. OXYCODONE-ACETAMINOPHEN [Concomitant]
     Active Substance: ACETAMINOPHEN\OXYCODONE HYDROCHLORIDE
  5. FLUTICASONE AND SALMETEROL [Concomitant]
     Active Substance: FLUTICASONE PROPIONATE\SALMETEROL XINAFOATE
  6. METOPROLOL [Concomitant]
     Active Substance: METOPROLOL
  7. PRAVSATATIN [Concomitant]
  8. AMIODARONE [Concomitant]
     Active Substance: AMIODARONE
  9. IBUPROFEN. [Concomitant]
     Active Substance: IBUPROFEN

REACTIONS (3)
  - Wound infection [None]
  - International normalised ratio decreased [None]
  - International normalised ratio increased [None]

NARRATIVE: CASE EVENT DATE: 20140820
